FAERS Safety Report 16516763 (Version 1)
Quarter: 2019Q3

REPORT INFORMATION
  Report Type: Spontaneous
  Country: US (occurrence: US)
  Receive Date: 20190522
  Receipt Date: 20190522
  Transmission Date: 20191004
  Serious: Yes (Death)
  Sender: FDA-Public Use
  Company Number: None

PATIENT
  Age: 34 Year
  Sex: Male

DRUGS (3)
  1. STELARA [Suspect]
     Active Substance: USTEKINUMAB
     Indication: COLITIS
     Dates: start: 20190125, end: 20190406
  2. STELARA [Suspect]
     Active Substance: USTEKINUMAB
     Indication: COLITIS ULCERATIVE
     Dates: start: 20190125, end: 20190406
  3. STELARA [Suspect]
     Active Substance: USTEKINUMAB
     Indication: RECTAL HAEMORRHAGE
     Dates: start: 20190125, end: 20190406

REACTIONS (4)
  - Internal haemorrhage [None]
  - Cerebral haemorrhage [None]
  - Abdominal infection [None]
  - Colectomy [None]

NARRATIVE: CASE EVENT DATE: 20190406
